FAERS Safety Report 4599626-4 (Version None)
Quarter: 2005Q1

REPORT INFORMATION
  Report Type: 
  Country: None (occurrence: None)
  Receive Date: 20050303
  Receipt Date: 20050216
  Transmission Date: 20050727
  Serious: Yes (Death)
  Sender: FDA-Public Use
  Company Number: PHEH2005US01713

PATIENT
  Age: 78 Year
  Sex: Female
  Weight: 55.3388 kg

DRUGS (11)
  1. VISUDYNE [Suspect]
     Indication: MACULAR DEGENERATION
     Dosage: 9.6 MG DAILY IV
     Route: 042
     Dates: start: 20050203, end: 20050203
  2. VISUDYNE [Suspect]
     Indication: MACULAR DEGENERATION
     Dates: start: 20040301, end: 20040301
  3. BISOPROLOL FUMARATE [Concomitant]
  4. COREG [Concomitant]
  5. ADVIL [Concomitant]
  6. NAPROXEN [Concomitant]
  7. FLUORESCEIN [Concomitant]
  8. OCUVITE [Concomitant]
  9. ZIAC [Concomitant]
  10. LASIX [Concomitant]
  11. BEXTRA [Concomitant]

REACTIONS (8)
  - ACUTE SINUSITIS [None]
  - BACK PAIN [None]
  - COUGH [None]
  - HAEMORRHAGE [None]
  - INFUSION RELATED REACTION [None]
  - LOSS OF CONSCIOUSNESS [None]
  - RUPTURED CEREBRAL ANEURYSM [None]
  - SOMNOLENCE [None]
